FAERS Safety Report 6930768-1 (Version None)
Quarter: 2010Q3

REPORT INFORMATION
  Report Type: 
  Country: None (occurrence: None)
  Receive Date: 20100818
  Receipt Date: 20100804
  Transmission Date: 20110219
  Serious: Yes (Other)
  Sender: FDA-Public Use
  Company Number: US-ELI_LILLY_AND_COMPANY-US201008002276

PATIENT
  Age: 65 Year
  Sex: Female

DRUGS (3)
  1. EFFIENT [Suspect]
  2. ASPIRIN [Concomitant]
  3. ANGIOMAX [Concomitant]

REACTIONS (3)
  - HYPERSENSITIVITY [None]
  - THROMBOCYTOPENIA [None]
  - WHITE BLOOD CELL COUNT ABNORMAL [None]
